FAERS Safety Report 25047782 (Version 1)
Quarter: 2025Q1

REPORT INFORMATION
  Report Type: Report from Study
  Country: CO (occurrence: CO)
  Receive Date: 20250306
  Receipt Date: 20250306
  Transmission Date: 20250409
  Serious: Yes (Hospitalization)
  Sender: EISAI
  Company Number: CO-Eisai-EC-2025-185302

PATIENT
  Age: 75 Year
  Sex: Male
  Weight: 80 kg

DRUGS (4)
  1. LENVIMA [Suspect]
     Active Substance: LENVATINIB
     Indication: Thyroid cancer
     Dates: start: 20240608, end: 20240717
  2. LENVIMA [Suspect]
     Active Substance: LENVATINIB
     Dates: start: 20240720, end: 20240801
  3. LENVIMA [Suspect]
     Active Substance: LENVATINIB
     Dates: start: 20240815, end: 20241114
  4. LENVIMA [Suspect]
     Active Substance: LENVATINIB
     Dates: start: 20241210, end: 20250217

REACTIONS (1)
  - Abscess neck [Not Recovered/Not Resolved]

NARRATIVE: CASE EVENT DATE: 20250201
